FAERS Safety Report 4935330-8 (Version None)
Quarter: 2006Q1

REPORT INFORMATION
  Report Type: 
  Country: None (occurrence: None)
  Receive Date: 20060302
  Receipt Date: 20060210
  Transmission Date: 20060701
  Serious: Yes (Other)
  Sender: FDA-Public Use
  Company Number: US200602002584

PATIENT
  Age: 42 Year
  Sex: Female

DRUGS (3)
  1. CYMBALTA [Suspect]
     Indication: LUMBAR RADICULOPATHY
     Dosage: 60 MG,
     Dates: start: 20050101, end: 20051201
  2. NEURONTIN [Concomitant]
  3. NEXIUM [Concomitant]

REACTIONS (3)
  - ALOPECIA [None]
  - SKIN ULCER [None]
  - ULCER [None]
